FAERS Safety Report 5531965-2 (Version None)
Quarter: 2007Q4

REPORT INFORMATION
  Report Type: 
  Country: None (occurrence: None)
  Receive Date: 20071203
  Receipt Date: 20071126
  Transmission Date: 20080405
  Serious: No
  Sender: FDA-Public Use
  Company Number: BR-ELI_LILLY_AND_COMPANY-BR200711005810

PATIENT
  Sex: Male

DRUGS (3)
  1. CIALIS [Suspect]
     Dosage: UNK, UNKNOWN
     Route: 065
  2. ENALAPRIL MALEATE [Concomitant]
     Dosage: 10 MG, EACH EVENING
     Route: 065
  3. NATRILIX SR [Concomitant]
     Dosage: 1.5 MG, EACH MORNING
     Route: 065

REACTIONS (1)
  - VISUAL DISTURBANCE [None]
